FAERS Safety Report 13653536 (Version 1)
Quarter: 2017Q2

REPORT INFORMATION
  Report Type: Spontaneous
  Country: US (occurrence: US)
  Receive Date: 20170614
  Receipt Date: 20170614
  Transmission Date: 20170830
  Serious: No
  Sender: FDA-Public Use
  Company Number: US-ROCHE-1328752

PATIENT
  Age: 52 Year
  Sex: Male

DRUGS (1)
  1. XELODA [Suspect]
     Active Substance: CAPECITABINE
     Indication: PRODUCT USED FOR UNKNOWN INDICATION
     Dosage: 3 TABLETS (1500 MG) BY MOUTH AFTER BREAKFAST AND 3 TABLETS AFTER DINNER FOR 14 DAYS FOLLOWED BY 7 DA
     Route: 048

REACTIONS (1)
  - Flatulence [Unknown]
